FAERS Safety Report 9925041 (Version 1)
Quarter: 2014Q1

REPORT INFORMATION
  Report Type: Spontaneous
  Country: US (occurrence: None)
  Receive Date: 20140225
  Receipt Date: 20140225
  Transmission Date: 20141002
  Serious: Yes (Disabling, Other)
  Sender: FDA-Public Use
  Company Number: None

PATIENT
  Age: 89 Year
  Sex: Male

DRUGS (16)
  1. VALRUBICIN [Suspect]
     Indication: BLADDER CANCER
     Dates: start: 20140122
  2. GLIPIZIDE [Concomitant]
  3. CAPTOPRIL [Concomitant]
  4. (CLOPIDOGREL BISULFATE [Concomitant]
  5. PROVIGIL [Concomitant]
  6. ECOTRIN [Concomitant]
  7. LORATADINE [Concomitant]
  8. DONEPEZIL [Concomitant]
  9. TRAZADONE [Concomitant]
  10. TAMSULOSIN [Concomitant]
  11. VESICARE [Concomitant]
  12. FUROSEMIDE [Concomitant]
  13. METOPROLOL [Concomitant]
  14. HYDROCORTISONE [Concomitant]
  15. MUCINEX [Concomitant]
  16. FINASTERIDE [Concomitant]

REACTIONS (7)
  - Chills [None]
  - Local swelling [None]
  - Swollen tongue [None]
  - Swelling face [None]
  - Dysgeusia [None]
  - Ageusia [None]
  - Incorrect drug administration duration [None]
